FAERS Safety Report 8986979 (Version 1)
Quarter: 2012Q4

REPORT INFORMATION
  Report Type: Spontaneous
  Country: US (occurrence: None)
  Receive Date: 20121214
  Receipt Date: 20121214
  Transmission Date: 20130627
  Serious: Yes (Hospitalization)
  Sender: FDA-Public Use
  Company Number: 2012SP004393

PATIENT
  Age: 49 Year
  Sex: Female
  Weight: 68.57 kg

DRUGS (16)
  1. FLUOROURACIL [Suspect]
     Indication: COLORECTAL CANCER
     Route: 042
     Dates: start: 20121009
  2. FLUOROURACIL [Suspect]
     Indication: METASTASES TO LIVER
     Route: 042
     Dates: start: 20121009
  3. OXALIPLATIN [Suspect]
     Route: 042
     Dates: start: 20121009
  4. OXALIPLATIN [Suspect]
     Route: 042
     Dates: start: 20121009
  5. BEVACIZUMAB [Suspect]
     Dates: start: 20121009
  6. FOLINIC ACID [Suspect]
     Dates: start: 20121009
  7. ATENOLOL [Concomitant]
  8. DURAGESIC /00174601/ [Concomitant]
  9. LEXAPRO [Concomitant]
  10. ATIVAN [Concomitant]
  11. RITALIN [Concomitant]
  12. TRAZODONE [Concomitant]
  13. PREVACID [Concomitant]
  14. PERI-COLACE [Concomitant]
  15. MORPHINE SULFATE [Concomitant]
  16. SENOKOT /00142201/ [Concomitant]

REACTIONS (5)
  - Clostridium difficile colitis [None]
  - Vomiting [None]
  - Pain [None]
  - Nausea [None]
  - Dehydration [None]
